FAERS Safety Report 9790759 (Version 2)
Quarter: 2014Q1

REPORT INFORMATION
  Report Type: Report from Study
  Country: US (occurrence: US)
  Receive Date: 20131231
  Receipt Date: 20140107
  Transmission Date: 20141002
  Serious: Yes (Hospitalization)
  Sender: FDA-Public Use
  Company Number: US-ABBVIE-13P-163-1183036-00

PATIENT
  Age: 48 Year
  Sex: Male
  Weight: 105.33 kg

DRUGS (7)
  1. HUMIRA [Suspect]
     Indication: PSORIASIS
     Dates: start: 201310
  2. VALIUM [Concomitant]
     Indication: MUSCLE SPASMS
  3. ZANAFLEX [Concomitant]
     Indication: MUSCLE SPASMS
  4. FLEXERIL [Concomitant]
     Indication: MUSCLE SPASMS
  5. PREBIOTIC [Concomitant]
     Indication: DYSPEPSIA
  6. DILAUDID [Concomitant]
     Indication: PAIN
  7. OXYCONTIN [Concomitant]
     Indication: PAIN

REACTIONS (3)
  - Local swelling [Unknown]
  - Pain in extremity [Unknown]
  - Thrombosis [Unknown]
